FAERS Safety Report 24584646 (Version 1)
Quarter: 2024Q4

REPORT INFORMATION
  Report Type: Spontaneous
  Country: US (occurrence: US)
  Receive Date: 20241106
  Receipt Date: 20241106
  Transmission Date: 20250115
  Serious: Yes (Other)
  Sender: Kanchan Healthcare
  Company Number: US-Kanchan Healthcare INC-2164508

PATIENT
  Age: 58 Year
  Sex: Female

DRUGS (1)
  1. ETHAMBUTOL HYDROCHLORIDE [Suspect]
     Active Substance: ETHAMBUTOL HYDROCHLORIDE
     Indication: Product used for unknown indication

REACTIONS (1)
  - Electrocardiogram QT prolonged [Unknown]
